FAERS Safety Report 9267076 (Version 2)
Quarter: 2013Q2

REPORT INFORMATION
  Report Type: Spontaneous
  Country: US (occurrence: US)
  Receive Date: 20130502
  Receipt Date: 20130626
  Transmission Date: 20140414
  Serious: Yes (Hospitalization, Other)
  Sender: FDA-Public Use
  Company Number: US-PFIZER INC-2013129104

PATIENT
  Age: 90 Year
  Sex: Male

DRUGS (1)
  1. TYGACIL [Suspect]
     Dosage: 50 MG, 2X/DAY
     Route: 042
     Dates: start: 20130410, end: 20130423

REACTIONS (1)
  - Pancreatitis acute [Recovering/Resolving]
